FAERS Safety Report 15541614 (Version 1)
Quarter: 2018Q4

REPORT INFORMATION
  Report Type: Spontaneous
  Country: KR (occurrence: KR)
  Receive Date: 20181023
  Receipt Date: 20181023
  Transmission Date: 20190205
  Serious: Yes (Hospitalization, Other)
  Sender: FDA-Public Use
  Company Number: KR-BAYER-2018-189229

PATIENT
  Age: 66 Year
  Sex: Male

DRUGS (2)
  1. SORAFENIB (RAF KINASE INHIBITOR) [Suspect]
     Active Substance: SORAFENIB
     Indication: HEPATOCELLULAR CARCINOMA
     Dosage: UNK
  2. SORAFENIB (RAF KINASE INHIBITOR) [Suspect]
     Active Substance: SORAFENIB
     Indication: METASTASES TO BONE
     Dosage: 600 MG, DAILY

REACTIONS (4)
  - Metastases to bone [Not Recovered/Not Resolved]
  - Thoracic spinal stenosis [Recovering/Resolving]
  - Musculoskeletal pain [Recovering/Resolving]
  - Palmar-plantar erythrodysaesthesia syndrome [None]
